FAERS Safety Report 7630294-0 (Version None)
Quarter: 2011Q3

REPORT INFORMATION
  Report Type: 
  Country: None (occurrence: None)
  Receive Date: 20110722
  Receipt Date: 20110714
  Transmission Date: 20111222
  Serious: Yes (Hospitalization, Disabling, Other)
  Sender: FDA-Public Use
  Company Number: PHEH2009US12310

PATIENT
  Sex: Male

DRUGS (2)
  1. ZOMETA [Suspect]
     Dosage: UNK
     Dates: start: 20030101, end: 20060101
  2. VIRAMUNE [Concomitant]

REACTIONS (31)
  - PANCREATITIS ACUTE [None]
  - INFLAMMATION [None]
  - PHYSICAL DISABILITY [None]
  - ANXIETY [None]
  - JAW FRACTURE [None]
  - GINGIVAL SWELLING [None]
  - OVERDOSE [None]
  - OSTEOMYELITIS [None]
  - SENSITIVITY OF TEETH [None]
  - ABDOMINAL PAIN [None]
  - TOOTHACHE [None]
  - CONSTIPATION [None]
  - JAW CYST [None]
  - OSTEONECROSIS OF JAW [None]
  - PAIN [None]
  - INFECTION [None]
  - DENTAL CARIES [None]
  - PAIN IN JAW [None]
  - DISCOMFORT [None]
  - SUBCUTANEOUS ABSCESS [None]
  - TOOTH ABSCESS [None]
  - INJURY [None]
  - EMOTIONAL DISTRESS [None]
  - TENDERNESS [None]
  - HYPOAESTHESIA ORAL [None]
  - NEPHROLITHIASIS [None]
  - LACERATION [None]
  - FATIGUE [None]
  - DIVERTICULUM [None]
  - DEFORMITY [None]
  - HEADACHE [None]
